FAERS Safety Report 19394755 (Version 1)
Quarter: 2021Q2

REPORT INFORMATION
  Report Type: Spontaneous
  Country: US (occurrence: US)
  Receive Date: 20210609
  Receipt Date: 20210609
  Transmission Date: 20210717
  Serious: No
  Sender: FDA-Public Use
  Company Number: None

PATIENT
  Age: 79 Year
  Sex: Male
  Weight: 92 kg

DRUGS (1)
  1. PREGABALIN (PREGABALIN 100MG CAP, ORAL) [Suspect]
     Active Substance: PREGABALIN
     Indication: PAIN
     Route: 048
     Dates: start: 20210517, end: 20210601

REACTIONS (3)
  - Tremor [None]
  - Myoclonus [None]
  - Confusional state [None]

NARRATIVE: CASE EVENT DATE: 20210517
